FAERS Safety Report 11630029 (Version 1)
Quarter: 2015Q4

REPORT INFORMATION
  Report Type: Spontaneous
  Country: US (occurrence: US)
  Receive Date: 20151014
  Receipt Date: 20151014
  Transmission Date: 20160304
  Serious: No
  Sender: FDA-Public Use
  Company Number: US-INDIVIOR-RB-078986-2015

PATIENT
  Age: 45 Year
  Sex: Male

DRUGS (2)
  1. SUBOXONE [Suspect]
     Active Substance: BUPRENORPHINE HYDROCHLORIDE\NALOXONE HYDROCHLORIDE
     Indication: DRUG DEPENDENCE
     Dosage: 16 MG, UNKNOWN (TAPERING FROM 16 MG TO 10 MG)
     Route: 065
     Dates: start: 20131223
  2. SUBOXONE [Suspect]
     Active Substance: BUPRENORPHINE HYDROCHLORIDE\NALOXONE HYDROCHLORIDE
     Dosage: PRESENTLY AT 12 MG FOR ONE MONTH, UNKNOWN
     Route: 065

REACTIONS (2)
  - Pain [Recovered/Resolved]
  - Gynaecomastia [Recovering/Resolving]

NARRATIVE: CASE EVENT DATE: 201502
